FAERS Safety Report 5143609-2 (Version None)
Quarter: 2006Q4

REPORT INFORMATION
  Report Type: 
  Country: None (occurrence: None)
  Receive Date: 20061030
  Receipt Date: 20061020
  Transmission Date: 20070319
  Serious: Yes (Hospitalization, Other)
  Sender: FDA-Public Use
  Company Number: 2006110296

PATIENT
  Age: 45 Year
  Sex: Female
  Weight: 63.5036 kg

DRUGS (3)
  1. ZOLOFT [Suspect]
     Indication: ANXIETY
     Dosage: 50 MG (50 MG,1 IN 1 D)
     Dates: start: 20060814, end: 20060905
  2. ZOLOFT [Suspect]
     Indication: DEPRESSION
     Dosage: 50 MG (50 MG,1 IN 1 D)
     Dates: start: 20060814, end: 20060905
  3. SYNTHROID [Concomitant]

REACTIONS (11)
  - ANXIETY [None]
  - CHILLS [None]
  - DRUG HYPERSENSITIVITY [None]
  - EAR DISCOMFORT [None]
  - HEADACHE [None]
  - INSOMNIA [None]
  - ORAL PAIN [None]
  - SINUS DISORDER [None]
  - SKIN BURNING SENSATION [None]
  - TREMOR [None]
  - URTICARIA [None]
